FAERS Safety Report 7497773-0 (Version None)
Quarter: 2011Q2

REPORT INFORMATION
  Report Type: 
  Country: None (occurrence: None)
  Receive Date: 20110524
  Receipt Date: 20110519
  Transmission Date: 20111010
  Serious: Yes (Death, Hospitalization)
  Sender: FDA-Public Use
  Company Number: MX-BRISTOL-MYERS SQUIBB COMPANY-15633498

PATIENT
  Age: 59 Year
  Sex: Female

DRUGS (3)
  1. METHOTREXATE [Suspect]
     Dates: start: 20080901, end: 20110313
  2. FOLIC ACID [Concomitant]
     Dates: start: 20080901, end: 20110313
  3. ABATACEPT [Suspect]
     Indication: RHEUMATOID ARTHRITIS
     Route: 058
     Dates: start: 20081030, end: 20110310

REACTIONS (11)
  - MULTI-ORGAN FAILURE [None]
  - THERAPEUTIC RESPONSE DECREASED [None]
  - DEHYDRATION [None]
  - URAEMIC ENCEPHALOPATHY [None]
  - NEUTROPHILIA [None]
  - THROMBOCYTOPENIA [None]
  - PULMONARY CONGESTION [None]
  - GASTROENTERITIS [None]
  - KIDNEY INFECTION [None]
  - OLIGURIA [None]
  - PNEUMONIA [None]
